FAERS Safety Report 5726759-9 (Version None)
Quarter: 2008Q2

REPORT INFORMATION
  Report Type: 
  Country: None (occurrence: None)
  Receive Date: 20080502
  Receipt Date: 20080424
  Transmission Date: 20081010
  Serious: Yes (Other)
  Sender: FDA-Public Use
  Company Number: CA-PFIZER INC-2008003654

PATIENT
  Age: 43 Year
  Sex: Female

DRUGS (6)
  1. CELEBREX [Suspect]
     Indication: CEREBRAL DISORDER
     Route: 048
     Dates: start: 20080106, end: 20080107
  2. CELEBREX [Suspect]
     Indication: BACK PAIN
  3. CELEBREX [Suspect]
     Indication: MYALGIA
  4. SYNTHROID [Concomitant]
     Indication: HYPOTHYROIDISM
     Dosage: DAILY DOSE:.112MG
     Route: 048
  5. ENTROPHEN [Concomitant]
     Indication: CEREBROVASCULAR ACCIDENT
     Dosage: DAILY DOSE:325MG-FREQ:DAILY
     Route: 048
  6. OXAZEPAM [Concomitant]
     Route: 048

REACTIONS (12)
  - ABDOMINAL DISTENSION [None]
  - ACNE [None]
  - BURNING SENSATION [None]
  - DRUG HYPERSENSITIVITY [None]
  - ERYTHEMA [None]
  - FEELING ABNORMAL [None]
  - HYPERVENTILATION [None]
  - HYPOAESTHESIA [None]
  - HYPOAESTHESIA FACIAL [None]
  - PAIN [None]
  - PAIN IN EXTREMITY [None]
  - RASH [None]
